FAERS Safety Report 21811042 (Version 1)
Quarter: 2023Q1

REPORT INFORMATION
  Report Type: Report from Study
  Country: US (occurrence: US)
  Receive Date: 20230103
  Receipt Date: 20230103
  Transmission Date: 20230418
  Serious: Yes (Death, Other)
  Sender: FDA-Public Use
  Company Number: US-GILEAD-2022-0611336

PATIENT
  Age: 74 Year
  Sex: Female

DRUGS (7)
  1. AZTREONAM LYSINE [Suspect]
     Active Substance: AZTREONAM LYSINE
     Indication: Product used for unknown indication
     Dosage: INHALE 75 MG 3 TIMES DAILY ALTERNATE ONE MONTH ON AND ONE MONTH OFF
     Route: 055
     Dates: start: 202211
  2. ELIQUIS [Concomitant]
     Active Substance: APIXABAN
  3. DUPIXENT [Concomitant]
     Active Substance: DUPILUMAB
  4. FUROSEMIDE [Concomitant]
     Active Substance: FUROSEMIDE
  5. POTASSIUM CHLORIDE [Concomitant]
     Active Substance: POTASSIUM CHLORIDE
  6. AMIODARONE [Concomitant]
     Active Substance: AMIODARONE
  7. MAGNESIUM [Concomitant]
     Active Substance: MAGNESIUM

REACTIONS (1)
  - Death [Fatal]

NARRATIVE: CASE EVENT DATE: 20221221
